FAERS Safety Report 5515020-3 (Version None)
Quarter: 2007Q4

REPORT INFORMATION
  Report Type: 
  Country: None (occurrence: None)
  Receive Date: 20071113
  Receipt Date: 20061116
  Transmission Date: 20080405
  Serious: No
  Sender: FDA-Public Use
  Company Number: A0627819A

PATIENT
  Age: 63 Year
  Sex: Male

DRUGS (7)
  1. COREG [Suspect]
     Indication: LEFT VENTRICULAR DYSFUNCTION
     Dosage: 3.125MG TWICE PER DAY
     Route: 048
     Dates: start: 20061020
  2. ALDACTONE [Suspect]
     Indication: HYPERTENSION
     Dosage: 25MG PER DAY
     Route: 048
     Dates: start: 20061012
  3. ALTACE [Suspect]
     Indication: HYPERTENSION
     Dosage: 5MG PER DAY
     Route: 048
     Dates: start: 20061012
  4. ANTIHISTAMINE [Suspect]
     Indication: SINUS DISORDER
     Route: 048
  5. PLAVIX [Concomitant]
  6. IMDUR [Concomitant]
  7. LIPITOR [Concomitant]

REACTIONS (2)
  - HYPERHIDROSIS [None]
  - HYPOTENSION [None]
